FAERS Safety Report 18849607 (Version 2)
Quarter: 2022Q2

REPORT INFORMATION
  Report Type: Report from Study
  Country: US (occurrence: None)
  Receive Date: 20210205
  Receipt Date: 20220510
  Transmission Date: 20220721
  Serious: Yes (Other)
  Sender: FDA-Public Use
  Company Number: US-MERCK HEALTHCARE KGAA-9216709

PATIENT
  Sex: Female

DRUGS (1)
  1. REBIF [Suspect]
     Active Substance: INTERFERON BETA-1A
     Indication: Multiple sclerosis
     Route: 058
     Dates: start: 20120411, end: 202201

REACTIONS (4)
  - Bipolar disorder [Unknown]
  - Depression [Recovering/Resolving]
  - Fatigue [Unknown]
  - Post-traumatic stress disorder [Unknown]
